FAERS Safety Report 4761284-3 (Version None)
Quarter: 2005Q3

REPORT INFORMATION
  Report Type: 
  Country: None (occurrence: None)
  Receive Date: 20050906
  Receipt Date: 20050823
  Transmission Date: 20060218
  Serious: Yes (Hospitalization, Disabling)
  Sender: FDA-Public Use
  Company Number: AU-JNJFOC-20050900015

PATIENT
  Sex: Female

DRUGS (8)
  1. TRAMADOL HCL [Suspect]
     Indication: BACK PAIN
     Dosage: 200-550MG.
     Route: 065
  2. TRAMADOL HCL [Suspect]
     Route: 065
  3. METFORMIN [Concomitant]
     Route: 065
  4. PERINDOPRIL [Concomitant]
     Route: 065
  5. BRUFEN [Concomitant]
     Route: 065
  6. PANAMAX [Concomitant]
     Route: 065
  7. COVERSYL PLUS [Concomitant]
     Route: 065
  8. COVERSYL PLUS [Concomitant]
     Indication: HYPERTENSION
     Route: 065

REACTIONS (6)
  - CONSTIPATION [None]
  - DIARRHOEA [None]
  - LIVER FUNCTION TEST ABNORMAL [None]
  - MANIA [None]
  - URINARY INCONTINENCE [None]
  - URINARY RETENTION [None]
